FAERS Safety Report 9057858 (Version 2)
Quarter: 2013Q4

REPORT INFORMATION
  Report Type: Spontaneous
  Country: RU (occurrence: RU)
  Receive Date: 20130204
  Receipt Date: 20131114
  Transmission Date: 20140711
  Serious: Yes (Life-Threatening, Hospitalization)
  Sender: FDA-Public Use
  Company Number: RU-ALEXION-A201300137

PATIENT
  Age: 7 Year
  Sex: Female

DRUGS (7)
  1. SOLIRIS 300MG [Suspect]
     Indication: HAEMOLYTIC URAEMIC SYNDROME
     Dosage: 600 MG, QW
     Route: 042
     Dates: start: 20121227, end: 20121227
  2. SOLIRIS 300MG [Suspect]
     Indication: OFF LABEL USE
     Dosage: 300 MG, QW
     Route: 042
     Dates: start: 20130103, end: 20130103
  3. SOLIRIS 300MG [Suspect]
     Dosage: 300 MG, Q2W
     Route: 042
     Dates: start: 20130117
  4. RENAGEL [Concomitant]
     Indication: RENAL FAILURE CHRONIC
     Dosage: UNK
     Route: 048
     Dates: start: 2010
  5. KREON [Concomitant]
     Indication: PANCREATITIS
     Dosage: UNK
     Route: 048
     Dates: start: 20120406
  6. DOXYCYCLINE [Concomitant]
     Dosage: UNK
     Dates: start: 20121201, end: 20130123
  7. ENALAPRIL [Concomitant]
     Dosage: UNK
     Dates: start: 20120106

REACTIONS (3)
  - Lower respiratory tract infection [Not Recovered/Not Resolved]
  - Peritonitis [Not Recovered/Not Resolved]
  - Off label use [Unknown]
